FAERS Safety Report 8307802-X (Version None)
Quarter: 2012Q2

REPORT INFORMATION
  Report Type: 
  Country: None (occurrence: None)
  Receive Date: 20120424
  Receipt Date: 20120409
  Transmission Date: 20120825
  Serious: No
  Sender: FDA-Public Use
  Company Number: US-WATSON-2011-16478

PATIENT
  Sex: Male
  Weight: 107.9 kg

DRUGS (8)
  1. VYTORIN [Concomitant]
     Indication: PRODUCT USED FOR UNKNOWN INDICATION
  2. RAPAFLO [Suspect]
     Indication: PROSTATITIS
     Dosage: 8MG, DAILY
     Route: 048
     Dates: start: 20110415, end: 20110501
  3. FLEXERIL [Concomitant]
     Indication: PAIN
     Dosage: UNK
     Route: 065
  4. METFORMIN HCL [Concomitant]
     Indication: PRODUCT USED FOR UNKNOWN INDICATION
     Dosage: UNK
     Route: 065
  5. ASPIRIN [Concomitant]
     Indication: PRODUCT USED FOR UNKNOWN INDICATION
  6. VICODIN [Concomitant]
     Indication: PRODUCT USED FOR UNKNOWN INDICATION
     Dosage: UNK
     Route: 065
  7. NORCO [Suspect]
     Indication: PAIN
     Dosage: UNK
     Route: 065
     Dates: end: 20110501
  8. UNKNOWN ANTIBIOTIC [Concomitant]
     Indication: PROPHYLAXIS
     Dosage: UNK
     Route: 042

REACTIONS (4)
  - TACHYCARDIA [None]
  - DRUG INTERACTION [None]
  - ANXIETY [None]
  - ORTHOSTATIC HYPOTENSION [None]
